FAERS Safety Report 6339071-4 (Version None)
Quarter: 2009Q3

REPORT INFORMATION
  Report Type: 
  Country: None (occurrence: None)
  Receive Date: 20090903
  Receipt Date: 20090825
  Transmission Date: 20100115
  Serious: Yes (Disabling)
  Sender: FDA-Public Use
  Company Number: FR-ROCHE-652597

PATIENT
  Sex: Female

DRUGS (6)
  1. BONIVA [Suspect]
     Indication: OSTEOPOROSIS
     Route: 048
     Dates: start: 20090101
  2. BONIVA [Suspect]
     Dosage: DOSAGE REDUCED
     Route: 048
  3. ARIMIDEX [Suspect]
     Indication: BREAST CANCER
     Route: 048
     Dates: start: 20060101
  4. ACTONEL [Suspect]
     Indication: OSTEOPOROSIS
     Route: 048
     Dates: start: 20080701, end: 20081201
  5. RAFTON [Suspect]
     Route: 048
     Dates: start: 20080701, end: 20081201
  6. IDEOS [Concomitant]

REACTIONS (1)
  - OSTEONECROSIS [None]
